FAERS Safety Report 16466147 (Version 1)
Quarter: 2019Q2

REPORT INFORMATION
  Report Type: Other
  Country: US (occurrence: US)
  Receive Date: 20190621
  Receipt Date: 20190621
  Transmission Date: 20190711
  Serious: No
  Sender: FDA-Public Use
  Company Number: US-ACORDA-ACO_159237_2019

PATIENT
  Age: 67 Year
  Sex: Female

DRUGS (2)
  1. INBRIJA [Suspect]
     Active Substance: LEVODOPA
     Indication: PARKINSON^S DISEASE
     Dosage: 2 CAPSULES, TWICE DAILY
  2. INBRIJA [Suspect]
     Active Substance: LEVODOPA
     Indication: DYSTONIA

REACTIONS (5)
  - Sinusitis [Unknown]
  - Dizziness [Unknown]
  - Product use in unapproved indication [Unknown]
  - Feeling cold [Unknown]
  - Hypotension [Unknown]

NARRATIVE: CASE EVENT DATE: 20190608
